FAERS Safety Report 24305074 (Version 1)
Quarter: 2024Q3

REPORT INFORMATION
  Report Type: Spontaneous
  Country: US (occurrence: US)
  Receive Date: 20240911
  Receipt Date: 20240911
  Transmission Date: 20241017
  Serious: No
  Sender: ROCHE
  Company Number: US-ROCHE-10000077016

PATIENT
  Age: 69 Year
  Sex: Female

DRUGS (8)
  1. XOLAIR [Suspect]
     Active Substance: OMALIZUMAB
     Indication: Product used for unknown indication
     Route: 065
  2. HYDROCHLOROTHIAZIDE [Concomitant]
     Active Substance: HYDROCHLOROTHIAZIDE
  3. POTASSIUM [Concomitant]
     Active Substance: POTASSIUM
  4. GABAPENTIN [Concomitant]
     Active Substance: GABAPENTIN
  5. SIMVASTATIN [Concomitant]
     Active Substance: SIMVASTATIN
  6. CLOZAPINE [Concomitant]
     Active Substance: CLOZAPINE
  7. OMEGA 3 [Concomitant]
     Active Substance: CAPSAICIN
  8. ASPIRIN [Concomitant]
     Active Substance: ASPIRIN

REACTIONS (3)
  - Urticaria [Unknown]
  - Rash vesicular [Unknown]
  - Pruritus [Unknown]
